FAERS Safety Report 17168884 (Version 1)
Quarter: 2019Q4

REPORT INFORMATION
  Report Type: Report from Study
  Country: CA (occurrence: CA)
  Receive Date: 20191218
  Receipt Date: 20191218
  Transmission Date: 20200122
  Serious: Yes (Other)
  Sender: FDA-Public Use
  Company Number: CA-TAIHO ONCOLOGY  INC-EU-2019-03537

PATIENT
  Sex: Female
  Weight: 62.2 kg

DRUGS (1)
  1. LONSURF [Suspect]
     Active Substance: TIPIRACIL HYDROCHLORIDE\TRIFLURIDINE
     Indication: COLORECTAL CANCER METASTATIC
     Dosage: CURRENT CYCLE UNKNOWN.
     Route: 048
     Dates: start: 201906

REACTIONS (2)
  - Hip surgery [Recovering/Resolving]
  - Radiotherapy [Unknown]

NARRATIVE: CASE EVENT DATE: 2019
